FAERS Safety Report 16924551 (Version 1)
Quarter: 2019Q4

REPORT INFORMATION
  Report Type: Spontaneous
  Country: US (occurrence: US)
  Receive Date: 20191016
  Receipt Date: 20191016
  Transmission Date: 20200122
  Serious: Yes (Other)
  Sender: FDA-Public Use
  Company Number: US-ABBVIE-19K-163-2951889-00

PATIENT
  Sex: Male

DRUGS (1)
  1. DEPAKOTE [Suspect]
     Active Substance: DIVALPROEX SODIUM
     Indication: PRODUCT USED FOR UNKNOWN INDICATION
     Route: 065

REACTIONS (10)
  - Foetal exposure during pregnancy [Unknown]
  - Limb reduction defect [Unknown]
  - Maternal drugs affecting foetus [Unknown]
  - Cleft lip [Unknown]
  - Dysmorphism [Unknown]
  - Cleft palate [Unknown]
  - Heart disease congenital [Unknown]
  - Congenital genitourinary abnormality [Unknown]
  - Spina bifida [Unknown]
  - Developmental delay [Unknown]
